FAERS Safety Report 9160168 (Version 1)
Quarter: 2013Q1

REPORT INFORMATION
  Report Type: Spontaneous
  Country: IL (occurrence: None)
  Receive Date: 20130219
  Receipt Date: 20130219
  Transmission Date: 20140127
  Serious: Yes (Other)
  Sender: FDA-Public Use
  Company Number: VAL_01298_2013

PATIENT
  Age: 58 Year
  Sex: Male

DRUGS (5)
  1. CARBAMAZEPINE (CARBAMAZEPINE) CHEWABLE TABLET [Suspect]
     Indication: GRAND MAL CONVULSION
     Dosage: DF
  2. OMEPRAZOLE (OMEPRAZOLE) [Suspect]
     Dosage: DF
  3. AMOXICILLIN (AMOXICILLIN) [Suspect]
     Dosage: DF
  4. CLARITHROMYCIN (CLARITHROMYCIN) [Suspect]
     Dosage: DF
  5. PHENYTOIN [Concomitant]

REACTIONS (4)
  - Ataxia [None]
  - Vertigo [None]
  - Drug interaction [None]
  - Toxicity to various agents [None]
